FAERS Safety Report 13285289 (Version 1)
Quarter: 2017Q1

REPORT INFORMATION
  Report Type: Report from Study
  Country: IL (occurrence: IL)
  Receive Date: 20170301
  Receipt Date: 20170301
  Transmission Date: 20170428
  Serious: Yes (Death, Life-Threatening, Hospitalization, Other)
  Sender: FDA-Public Use
  Company Number: IL-BRISTOL-MYERS SQUIBB COMPANY-BMS-2017-015665

PATIENT
  Sex: Male
  Weight: 100 kg

DRUGS (5)
  1. ENALADEX [Concomitant]
     Active Substance: ENALAPRIL MALEATE
     Indication: PRODUCT USED FOR UNKNOWN INDICATION
     Dosage: UNK
     Route: 048
  2. APIXABAN [Suspect]
     Active Substance: APIXABAN
     Indication: CEREBROVASCULAR ACCIDENT PROPHYLAXIS
     Dosage: UNK
     Route: 065
     Dates: start: 20150605
  3. FUSID                              /00032601/ [Concomitant]
     Indication: PRODUCT USED FOR UNKNOWN INDICATION
     Dosage: UNK
     Route: 048
  4. CARVEDILOL. [Concomitant]
     Active Substance: CARVEDILOL
     Indication: PRODUCT USED FOR UNKNOWN INDICATION
     Dosage: UNK
     Route: 048
  5. PROCOR                             /00133102/ [Concomitant]
     Indication: PRODUCT USED FOR UNKNOWN INDICATION
     Dosage: UNK
     Route: 048

REACTIONS (4)
  - Infection [Unknown]
  - Cardiac failure congestive [Fatal]
  - Liver injury [Unknown]
  - Blood bilirubin increased [Unknown]
